FAERS Safety Report 13024542 (Version 1)
Quarter: 2016Q4

REPORT INFORMATION
  Report Type: Spontaneous
  Country: BR (occurrence: BR)
  Receive Date: 20161213
  Receipt Date: 20161213
  Transmission Date: 20170207
  Serious: Yes (Other)
  Sender: FDA-Public Use
  Company Number: BR-ABBVIE-16P-020-1809077-00

PATIENT
  Sex: Female
  Weight: 80 kg

DRUGS (4)
  1. SYNTHROID [Suspect]
     Active Substance: LEVOTHYROXINE SODIUM
     Dosage: 112 MCG IN MORNING (FASTING)
     Route: 048
  2. SYNTHROID [Suspect]
     Active Substance: LEVOTHYROXINE SODIUM
     Route: 065
  3. STEZZA [Concomitant]
     Indication: CONTRACEPTION
     Dosage: DAILY DOSE: 1 TABLET IN NIGHT
     Route: 048
     Dates: start: 201510
  4. SYNTHROID [Suspect]
     Active Substance: LEVOTHYROXINE SODIUM
     Indication: HYPOTHYROIDISM
     Route: 065

REACTIONS (5)
  - Maternal exposure during pregnancy [Unknown]
  - Foetal death [Unknown]
  - Therapy cessation [Unknown]
  - Drug dose omission [Unknown]
  - Menstruation delayed [Not Recovered/Not Resolved]

NARRATIVE: CASE EVENT DATE: 201610
